FAERS Safety Report 16106389 (Version 1)
Quarter: 2019Q1

REPORT INFORMATION
  Report Type: Spontaneous
  Country: IL (occurrence: IL)
  Receive Date: 20190322
  Receipt Date: 20190322
  Transmission Date: 20190418
  Serious: Yes (Disabling)
  Sender: FDA-Public Use
  Company Number: IND-IL-009507513-1903ISR007518

PATIENT
  Sex: Female

DRUGS (1)
  1. ELONVA [Suspect]
     Active Substance: CORIFOLLITROPIN ALFA
     Indication: ASSISTED FERTILISATION
     Dosage: UNK
     Dates: start: 20190309

REACTIONS (5)
  - Balance disorder [Recovered/Resolved]
  - Dry mouth [Recovered/Resolved]
  - Decreased appetite [Recovered/Resolved]
  - Vomiting [Recovered/Resolved]
  - Dizziness [Recovered/Resolved]

NARRATIVE: CASE EVENT DATE: 201903
